FAERS Safety Report 7655997-3 (Version None)
Quarter: 2011Q3

REPORT INFORMATION
  Report Type: 
  Country: None (occurrence: None)
  Receive Date: 20110804
  Receipt Date: 20110725
  Transmission Date: 20111222
  Serious: Yes (Other)
  Sender: FDA-Public Use
  Company Number: DE-JNJFOC-20110710748

PATIENT
  Age: 25 Year
  Sex: Female

DRUGS (2)
  1. PANTOPRAZOLE [Concomitant]
  2. REMICADE [Suspect]
     Indication: CROHN'S DISEASE
     Route: 042
     Dates: start: 20060101, end: 20080101

REACTIONS (3)
  - DIZZINESS [None]
  - SOMNOLENCE [None]
  - APHASIA [None]
